FAERS Safety Report 10176598 (Version 2)
Quarter: 2014Q2

REPORT INFORMATION
  Report Type: Report from Study
  Country: CN (occurrence: CN)
  Receive Date: 20140516
  Receipt Date: 20140523
  Transmission Date: 20141212
  Serious: Yes (Death)
  Sender: FDA-Public Use
  Company Number: PHHY2014CN059524

PATIENT
  Sex: Male
  Weight: 58 kg

DRUGS (5)
  1. TASIGNA [Suspect]
     Indication: CHRONIC MYELOID LEUKAEMIA
     Dosage: 800 MG, PER DAY
     Route: 048
     Dates: start: 20140211
  2. CEFAZOLIN SODIUM [Concomitant]
     Indication: PNEUMONIA
     Dosage: 2 G, Q12H
     Route: 042
     Dates: start: 20140211, end: 20140219
  3. RIBAVIRIN [Concomitant]
     Indication: PROPHYLAXIS
     Dosage: 0.6 G, Q12H
     Route: 042
     Dates: start: 20140211, end: 20140223
  4. FLUCONAZOLE [Concomitant]
     Indication: PROPHYLAXIS
     Dosage: 0.8 G, QD
     Route: 042
     Dates: start: 20140211, end: 20140223
  5. AMPHOTERICIN B [Concomitant]
     Indication: PROPHYLAXIS
     Dosage: 25 MG, QD
     Route: 042
     Dates: start: 20140222, end: 20140225

REACTIONS (4)
  - Lung infection [Fatal]
  - Cardiac failure [Fatal]
  - Chronic myeloid leukaemia [Fatal]
  - Malignant neoplasm progression [Fatal]
